FAERS Safety Report 4726107-7 (Version None)
Quarter: 2005Q3

REPORT INFORMATION
  Report Type: 
  Country: None (occurrence: None)
  Receive Date: 20050725
  Receipt Date: 20050711
  Transmission Date: 20060218
  Serious: Yes (Other)
  Sender: FDA-Public Use
  Company Number: 2005061586

PATIENT
  Sex: Female

DRUGS (2)
  1. BEXTRA [Suspect]
     Indication: PAIN
     Dates: start: 20050319
  2. BEXTRA [Suspect]
     Indication: PAIN
     Dates: start: 20050319

REACTIONS (1)
  - NO ADVERSE EFFECT [None]
